FAERS Safety Report 5230023-4 (Version None)
Quarter: 2007Q1

REPORT INFORMATION
  Report Type: 
  Country: None (occurrence: None)
  Receive Date: 20070206
  Receipt Date: 20060912
  Transmission Date: 20070707
  Serious: No
  Sender: FDA-Public Use
  Company Number: US-GLAXOSMITHKLINE-A0619774A

PATIENT
  Sex: Female

DRUGS (4)
  1. PAXIL [Suspect]
     Dosage: 20MG TWICE PER DAY
  2. PAXIL CR [Suspect]
     Route: 048
  3. VITAMIN AND MINERAL PRENATAL SUPPLEMENT W/ FOLIC ACID CAP [Concomitant]
  4. BENADRYL [Concomitant]

REACTIONS (8)
  - ANXIETY [None]
  - BRADYPHRENIA [None]
  - DRUG EXPOSURE DURING PREGNANCY [None]
  - MOOD SWINGS [None]
  - OFF LABEL USE [None]
  - RESTLESSNESS [None]
  - THERAPEUTIC RESPONSE UNEXPECTED [None]
  - TIC [None]
